FAERS Safety Report 20979442 (Version 1)
Quarter: 2022Q2

REPORT INFORMATION
  Report Type: Spontaneous
  Country: US (occurrence: US)
  Receive Date: 20220620
  Receipt Date: 20220620
  Transmission Date: 20220721
  Serious: Yes (Other)
  Sender: FDA-Public Use
  Company Number: US-BRISTOL-MYERS SQUIBB COMPANY-2022-055552

PATIENT
  Age: 89 Year
  Sex: Female

DRUGS (1)
  1. REVLIMID [Suspect]
     Active Substance: LENALIDOMIDE
     Indication: Malignant melanoma
     Dosage: TAKE 1 CAPSULE BY MOUTH EVERY DAY FOR 28 DAYS .
     Route: 048
     Dates: start: 20210113

REACTIONS (3)
  - Thrombosis [Unknown]
  - Product dose omission issue [Unknown]
  - Intentional product use issue [Unknown]
